FAERS Safety Report 15893127 (Version 1)
Quarter: 2019Q1

REPORT INFORMATION
  Report Type: Report from Study
  Country: US (occurrence: US)
  Receive Date: 20190130
  Receipt Date: 20190130
  Transmission Date: 20190417
  Serious: No
  Sender: FDA-Public Use
  Company Number: US-EXELIXIS-CABO-18015668

PATIENT
  Age: 39 Year
  Sex: Male

DRUGS (17)
  1. VENTOLIN [Concomitant]
     Active Substance: ALBUTEROL SULFATE
  2. DOCUSATE [Concomitant]
     Active Substance: DOCUSATE
  3. IBUPROFEN. [Concomitant]
     Active Substance: IBUPROFEN
  4. ACETAMINOPHEN. [Concomitant]
     Active Substance: ACETAMINOPHEN
  5. CABOMETYX [Suspect]
     Active Substance: CABOZANTINIB S-MALATE
     Dosage: 20 MG, QD
     Route: 048
     Dates: start: 2018
  6. CABOMETYX [Suspect]
     Active Substance: CABOZANTINIB S-MALATE
     Indication: RENAL CANCER
     Dosage: 40 MG, QD
     Route: 048
     Dates: start: 20180716, end: 2018
  7. QVAR [Concomitant]
     Active Substance: BECLOMETHASONE DIPROPIONATE
  8. BUSPIRONE [Concomitant]
     Active Substance: BUSPIRONE HYDROCHLORIDE
  9. CABOMETYX [Suspect]
     Active Substance: CABOZANTINIB S-MALATE
     Dosage: 40 MG, QD
     Route: 048
     Dates: start: 2018, end: 2018
  10. SENNA [Concomitant]
     Active Substance: SENNA LEAF\SENNOSIDES\SENNOSIDES A AND B
  11. MAGNESIUM [Concomitant]
     Active Substance: MAGNESIUM
  12. LIDOCAINE. [Concomitant]
     Active Substance: LIDOCAINE
  13. ASPIRIN. [Concomitant]
     Active Substance: ASPIRIN
  14. JANUVIA [Concomitant]
     Active Substance: SITAGLIPTIN PHOSPHATE
  15. AMLODIPINE BESYLATE. [Concomitant]
     Active Substance: AMLODIPINE BESYLATE
  16. MIRALAX [Concomitant]
     Active Substance: POLYETHYLENE GLYCOL 3350
  17. ENALAPRIL [Concomitant]
     Active Substance: ENALAPRIL

REACTIONS (5)
  - Oral mucosal blistering [Recovering/Resolving]
  - Palmar-plantar erythrodysaesthesia syndrome [Recovering/Resolving]
  - Hair colour changes [Unknown]
  - Acne [Unknown]
  - Blood pressure increased [Not Recovered/Not Resolved]

NARRATIVE: CASE EVENT DATE: 2018
